FAERS Safety Report 18870717 (Version 1)
Quarter: 2021Q1

REPORT INFORMATION
  Report Type: Spontaneous
  Country: GB (occurrence: GB)
  Receive Date: 20210209
  Receipt Date: 20210209
  Transmission Date: 20210420
  Serious: Yes (Disabling, Other)
  Sender: FDA-Public Use
  Company Number: GB-AUROBINDO-AUR-APL-2021-005459

PATIENT
  Age: 47 Year
  Sex: Male
  Weight: 56 kg

DRUGS (2)
  1. GABAPENTIN. [Concomitant]
     Active Substance: GABAPENTIN
     Indication: PRODUCT USED FOR UNKNOWN INDICATION
     Dosage: UNK (ONE DAILY FOR 3 DAYS THEN ONE TWICE A DAY FOR 3 DAYS THEN ONE THREE TIMES A DAY)
     Route: 065
     Dates: start: 20210203
  2. DULOXETINE. [Suspect]
     Active Substance: DULOXETINE
     Indication: CARPAL TUNNEL DECOMPRESSION
     Dosage: UNK (BD)
     Route: 048
     Dates: start: 20201105

REACTIONS (1)
  - Adverse drug reaction [Recovered/Resolved]

NARRATIVE: CASE EVENT DATE: 20201203
